FAERS Safety Report 4366232-6 (Version None)
Quarter: 2004Q2

REPORT INFORMATION
  Report Type: 
  Country: None (occurrence: None)
  Receive Date: 20040527
  Receipt Date: 20040428
  Transmission Date: 20050107
  Serious: No
  Sender: FDA-Public Use
  Company Number: US-BRISTOL-MYERS SQUIBB COMPANY-12574174

PATIENT
  Age: 62 Year
  Sex: Male
  Weight: 79 kg

DRUGS (7)
  1. DEFINITY [Suspect]
     Indication: ULTRASOUND SCAN
     Dosage: 1 CC
     Route: 040
     Dates: start: 20040428, end: 20040428
  2. INSULIN [Concomitant]
  3. DIGOXIN [Concomitant]
  4. LIPITOR [Concomitant]
  5. NEURONTIN [Concomitant]
  6. MONOPRIL [Concomitant]
  7. SPIRONOLACTONE [Concomitant]

REACTIONS (3)
  - MUSCULOSKELETAL DISCOMFORT [None]
  - NAUSEA [None]
  - VOMITING [None]
